FAERS Safety Report 8306870-9 (Version None)
Quarter: 2012Q2

REPORT INFORMATION
  Report Type: 
  Country: None (occurrence: None)
  Receive Date: 20120424
  Receipt Date: 20120412
  Transmission Date: 20120825
  Serious: Yes (Other)
  Sender: FDA-Public Use
  Company Number: CA-JNJFOC-20120406401

PATIENT
  Sex: Female
  Weight: 50.9 kg

DRUGS (9)
  1. REMICADE [Suspect]
     Indication: RHEUMATOID ARTHRITIS
     Route: 042
     Dates: start: 20020410
  2. CELEBREX [Concomitant]
     Route: 065
  3. VITAMIN [Concomitant]
     Route: 065
  4. RABEPRAZOLE SODIUM [Concomitant]
     Route: 065
  5. METHOTREXATE [Concomitant]
     Route: 065
  6. SYNTHROID [Concomitant]
     Route: 065
  7. REMICADE [Suspect]
     Route: 042
     Dates: start: 20120216
  8. MORPHINE SULFATE [Concomitant]
     Route: 065
  9. DULCOLAX [Concomitant]
     Route: 065

REACTIONS (5)
  - SURGERY [None]
  - COUGH [None]
  - WHITE BLOOD CELL COUNT DECREASED [None]
  - NASOPHARYNGITIS [None]
  - THROAT IRRITATION [None]
